FAERS Safety Report 23673675 (Version 1)
Quarter: 2024Q1

REPORT INFORMATION
  Report Type: Spontaneous
  Country: US (occurrence: US)
  Receive Date: 20240326
  Receipt Date: 20240326
  Transmission Date: 20240410
  Serious: No
  Sender: FDA-Public Use
  Company Number: US-Accord-364713

PATIENT
  Age: 47 Year
  Sex: Female
  Weight: 100.7 kg

DRUGS (1)
  1. TACROLIMUS [Suspect]
     Active Substance: TACROLIMUS
     Indication: Pruritus
     Dosage: FREQUENCY: ONCE, TOPICAL
     Dates: start: 20230620, end: 20230620

REACTIONS (3)
  - Feeling hot [Not Recovered/Not Resolved]
  - Skin burning sensation [Not Recovered/Not Resolved]
  - Eye irritation [Not Recovered/Not Resolved]

NARRATIVE: CASE EVENT DATE: 20230620
